FAERS Safety Report 12389357 (Version 2)
Quarter: 2016Q3

REPORT INFORMATION
  Report Type: Spontaneous
  Country: BR (occurrence: BR)
  Receive Date: 20160520
  Receipt Date: 20160706
  Transmission Date: 20161109
  Serious: Yes (Other)
  Sender: FDA-Public Use
  Company Number: BR-PFIZER INC-2016233683

PATIENT
  Age: 47 Year
  Sex: Female

DRUGS (4)
  1. PRISTIQ EXTENDED-RELEASE [Suspect]
     Active Substance: DESVENLAFAXINE SUCCINATE
     Indication: PANIC DISORDER
     Dosage: 75 MG, 1X/DAY
     Route: 048
     Dates: end: 2013
  2. PRISTIQ EXTENDED-RELEASE [Suspect]
     Active Substance: DESVENLAFAXINE SUCCINATE
     Dosage: 50 MG, 1X/DAY
     Route: 048
     Dates: start: 2013
  3. PRISTIQ EXTENDED-RELEASE [Suspect]
     Active Substance: DESVENLAFAXINE SUCCINATE
     Indication: DEPRESSION
     Dosage: 100 MG, 1X/DAY
     Route: 048
     Dates: start: 2009
  4. EUTHYROX [Concomitant]
     Active Substance: LEVOTHYROXINE SODIUM
     Indication: HYPOTHYROIDISM
     Dosage: UNK
     Dates: start: 1996

REACTIONS (8)
  - Dyspnoea [Recovered/Resolved]
  - Amnesia [Recovered/Resolved]
  - Panic disorder [Recovered/Resolved]
  - Sinusitis [Not Recovered/Not Resolved]
  - Drug dependence [Unknown]
  - Fear [Recovered/Resolved]
  - Malaise [Recovered/Resolved]
  - Tachycardia [Recovered/Resolved]

NARRATIVE: CASE EVENT DATE: 2015
